FAERS Safety Report 12227535 (Version 2)
Quarter: 2016Q2

REPORT INFORMATION
  Report Type: Spontaneous
  Country: TR (occurrence: TR)
  Receive Date: 20160331
  Receipt Date: 20160406
  Transmission Date: 20160815
  Serious: Yes (Other)
  Sender: FDA-Public Use
  Company Number: TR-ALLERGAN-1652315US

PATIENT
  Age: 3 Month
  Sex: Female
  Weight: 3.5 kg

DRUGS (1)
  1. OZURDEX [Suspect]
     Active Substance: DEXAMETHASONE
     Indication: MATERNAL EXPOSURE TIMING UNSPECIFIED
     Dosage: 0.7 MG, SINGLE
     Route: 064

REACTIONS (2)
  - Congenital pneumonia [Unknown]
  - Premature baby [Unknown]
